FAERS Safety Report 11564668 (Version 4)
Quarter: 2016Q1

REPORT INFORMATION
  Report Type: Spontaneous
  Country: US (occurrence: US)
  Receive Date: 20150928
  Receipt Date: 20160303
  Transmission Date: 20160525
  Serious: No
  Sender: FDA-Public Use
  Company Number: US-PFIZER INC-2015308777

PATIENT
  Age: 55 Year
  Sex: Female
  Weight: 61 kg

DRUGS (8)
  1. GABAPENTIN. [Suspect]
     Active Substance: GABAPENTIN
     Indication: PAIN IN EXTREMITY
     Dosage: 100MG BY MOUTH DAILY
     Route: 048
     Dates: start: 20150827, end: 20150830
  2. GABAPENTIN. [Suspect]
     Active Substance: GABAPENTIN
     Dosage: 200MG BY MOUTH DAILY
     Route: 048
     Dates: start: 20150831, end: 20150831
  3. SERTRALINE [Concomitant]
     Active Substance: SERTRALINE HYDROCHLORIDE
     Indication: PANIC ATTACK
     Dosage: 50MG TABLETS, 1.5 TABLETS BY MOUTH DAILY
     Route: 048
  4. GABAPENTIN. [Suspect]
     Active Substance: GABAPENTIN
     Dosage: 25 MG, 3X/DAY
     Route: 048
     Dates: start: 20151010
  5. LISINOPRIL. [Concomitant]
     Active Substance: LISINOPRIL
     Indication: BLOOD PRESSURE ABNORMAL
     Dosage: 10MG TABLET DAILY BY MOUTH
     Route: 048
  6. METFORMIN [Concomitant]
     Active Substance: METFORMIN HYDROCHLORIDE
     Indication: TYPE 2 DIABETES MELLITUS
     Dosage: 500MG TABLETS, BY MOUTH, 1.5 TABLETS IN MORNING, 1.5 TABLETS AT NIGHT FOR SUGAR, 2X/DAY
     Route: 048
  7. GABAPENTIN. [Suspect]
     Active Substance: GABAPENTIN
     Dosage: 300MG BY MOUTH DAILY
     Route: 048
     Dates: start: 20150901, end: 20150904
  8. MELOXICAM. [Concomitant]
     Active Substance: MELOXICAM
     Indication: ARTHRITIS
     Dosage: 15MG TABLET DAILY BY MOUTH
     Route: 048

REACTIONS (7)
  - Depression [Recovered/Resolved]
  - Drug hypersensitivity [Unknown]
  - Malaise [Unknown]
  - Memory impairment [Recovered/Resolved]
  - Thinking abnormal [Recovered/Resolved]
  - Abdominal pain upper [Recovered/Resolved]
  - Drug ineffective for unapproved indication [Recovered/Resolved]

NARRATIVE: CASE EVENT DATE: 20150827
